FAERS Safety Report 24455746 (Version 2)
Quarter: 2024Q4

REPORT INFORMATION
  Report Type: Report from Study
  Country: US (occurrence: US)
  Receive Date: 20241017
  Receipt Date: 20241018
  Transmission Date: 20250114
  Serious: No
  Sender: ROCHE
  Company Number: US-ROCHE-3483802

PATIENT
  Age: 31 Year
  Sex: Male

DRUGS (7)
  1. RITUXAN [Suspect]
     Active Substance: RITUXIMAB
     Indication: Dermatomyositis
     Dosage: STRENGTH: 500 MG/50 ML.?DOSE: INJECT 1000 MG ON DAY 0 AND 14 THEN REPEAT THE CYCLE EVERY 6 MONTHS.
     Route: 041
  2. TENORMIN [Concomitant]
     Active Substance: ATENOLOL
     Route: 048
  3. TENORMIN [Concomitant]
     Active Substance: ATENOLOL
     Route: 048
  4. TRICOR [Concomitant]
     Active Substance: FENOFIBRATE
     Route: 048
  5. GLUCOPHAGE XR [Concomitant]
     Active Substance: METFORMIN HYDROCHLORIDE
     Route: 048
  6. DELTASONE [Concomitant]
     Active Substance: PREDNISONE
     Route: 048
  7. DELTASONE [Concomitant]
     Active Substance: PREDNISONE
     Route: 048

REACTIONS (2)
  - Off label use [Unknown]
  - No adverse event [Unknown]
